FAERS Safety Report 24735494 (Version 2)
Quarter: 2024Q4

REPORT INFORMATION
  Report Type: Spontaneous
  Country: US (occurrence: US)
  Receive Date: 20241216
  Receipt Date: 20241226
  Transmission Date: 20250115
  Serious: No
  Sender: ROCHE
  Company Number: US-ROCHE-10000151155

PATIENT
  Age: 56 Year
  Sex: Male
  Weight: 90.72 kg

DRUGS (2)
  1. XOLAIR [Suspect]
     Active Substance: OMALIZUMAB
     Indication: Urticaria chronic
     Dosage: TWO SYRINGES AT A TIME
     Route: 058
     Dates: start: 2024
  2. XOLAIR [Suspect]
     Active Substance: OMALIZUMAB

REACTIONS (5)
  - Device malfunction [Unknown]
  - Device issue [Unknown]
  - Device leakage [Unknown]
  - Underdose [Unknown]
  - No adverse event [Unknown]

NARRATIVE: CASE EVENT DATE: 20241204
